FAERS Safety Report 9152142 (Version 2)
Quarter: 2013Q2

REPORT INFORMATION
  Report Type: Spontaneous
  Country: US (occurrence: US)
  Receive Date: 20130308
  Receipt Date: 20130409
  Transmission Date: 20140414
  Serious: Yes (Hospitalization)
  Sender: FDA-Public Use
  Company Number: US-ELI_LILLY_AND_COMPANY-US201303000241

PATIENT
  Sex: Male

DRUGS (8)
  1. HUMALOG LISPRO [Suspect]
     Indication: TYPE 1 DIABETES MELLITUS
     Dosage: UNK, PRN
     Route: 058
     Dates: start: 20120828
  2. LANTUS [Concomitant]
  3. ASPIRIN [Concomitant]
     Dosage: 325 MG, QD
  4. LISINOPRIL/HCTZ [Concomitant]
     Dosage: 1 DF, QD
  5. SIMVASTATIN [Concomitant]
     Dosage: 20 MG, QD
  6. TRAMADOL [Concomitant]
     Dosage: 50 MG, TID
  7. VIAGRA [Concomitant]
     Dosage: 100 MG, UNKNOWN
  8. VICODIN [Concomitant]
     Dosage: UNK, TID

REACTIONS (2)
  - Infection [Recovering/Resolving]
  - Peripheral vascular disorder [Recovering/Resolving]
